FAERS Safety Report 18250307 (Version 3)
Quarter: 2020Q4

REPORT INFORMATION
  Report Type: Report from Study
  Country: FR (occurrence: FR)
  Receive Date: 20200909
  Receipt Date: 20201214
  Transmission Date: 20210113
  Serious: Yes (Hospitalization, Other)
  Sender: FDA-Public Use
  Company Number: FR-BRISTOL-MYERS SQUIBB COMPANY-BMS-2020-072253

PATIENT
  Age: 52 Year
  Sex: Male
  Weight: 75 kg

DRUGS (3)
  1. NIVOLUMAB [Suspect]
     Active Substance: NIVOLUMAB
     Dosage: 360 MILLIGRAM
     Route: 065
     Dates: start: 20200818
  2. CISPLATIN. [Suspect]
     Active Substance: CISPLATIN
     Indication: SQUAMOUS CELL CARCINOMA OF HEAD AND NECK
     Dosage: 190 MILLIGRAM
     Route: 065
     Dates: start: 20200810
  3. NIVOLUMAB [Suspect]
     Active Substance: NIVOLUMAB
     Indication: SQUAMOUS CELL CARCINOMA OF HEAD AND NECK
     Dosage: 240 MILLIGRAM
     Route: 065
     Dates: start: 20200806

REACTIONS (3)
  - Pyrexia [Not Recovered/Not Resolved]
  - Hypokalaemia [Not Recovered/Not Resolved]
  - Device related infection [Unknown]

NARRATIVE: CASE EVENT DATE: 20200828
